FAERS Safety Report 9524145 (Version 1)
Quarter: 2013Q1

REPORT INFORMATION
  Report Type: Spontaneous
  Country: US (occurrence: None)
  Receive Date: 20130305
  Receipt Date: 20130305
  Transmission Date: 20140127
  Serious: Yes (Other)
  Sender: FDA-Public Use
  Company Number: 163-21880-12021000

PATIENT
  Age: 65 Year
  Sex: Male

DRUGS (5)
  1. REVLIMID [Suspect]
     Indication: CHRONIC LYMPHOCYTIC LEUKAEMIA
     Dosage: 10 MG, 21 IN 21 D, PO
     Route: 048
     Dates: start: 20111228
  2. VELCADE [Suspect]
  3. ARZERRA(OFATUMUMAB) [Concomitant]
  4. PENTOSTATIN [Concomitant]
  5. EXEMESTANE [Concomitant]

REACTIONS (2)
  - Fatigue [None]
  - Diarrhoea [None]
